FAERS Safety Report 7005822-9 (Version None)
Quarter: 2010Q3

REPORT INFORMATION
  Report Type: 
  Country: None (occurrence: None)
  Receive Date: 20100921
  Receipt Date: 20100916
  Transmission Date: 20110219
  Serious: Yes (Hospitalization, Other)
  Sender: FDA-Public Use
  Company Number: DE-ELI_LILLY_AND_COMPANY-DE201009004351

PATIENT
  Age: 70 Year
  Sex: Male

DRUGS (2)
  1. HUMALOG [Suspect]
     Indication: DIABETES MELLITUS
     Dosage: UNK, UNK
     Route: 058
  2. CARDIAC THERAPY [Concomitant]
     Indication: CARDIAC DISORDER

REACTIONS (1)
  - LIMB INJURY [None]
